FAERS Safety Report 19969643 (Version 1)
Quarter: 2021Q4

REPORT INFORMATION
  Report Type: Spontaneous
  Country: US (occurrence: US)
  Receive Date: 20211019
  Receipt Date: 20211019
  Transmission Date: 20220303
  Serious: No
  Sender: FDA-Public Use
  Company Number: US-TAKEDA-2021TUS064123

PATIENT
  Sex: Male
  Weight: 96 kg

DRUGS (1)
  1. FOSRENOL [Suspect]
     Active Substance: LANTHANUM CARBONATE
     Indication: Congenital cystic kidney disease
     Dosage: 1000 MILLIGRAM, QID
     Route: 065
     Dates: start: 2016

REACTIONS (4)
  - Inappropriate schedule of product administration [Unknown]
  - Product supply issue [Unknown]
  - Off label use [Unknown]
  - No adverse event [Unknown]
